FAERS Safety Report 8882259 (Version 2)
Quarter: 2012Q4

REPORT INFORMATION
  Report Type: 
  Country: DE (occurrence: DE)
  Receive Date: 20121105
  Receipt Date: 20121112
  Transmission Date: 20130627
  Serious: Yes (Death, Life-Threatening)
  Sender: FDA-Public Use
  Company Number: DE-GENZYME-CLOF-1002368

PATIENT
  Age: 62 Year
  Sex: Male
  Weight: 101.9 kg

DRUGS (5)
  1. EVOLTRA [Suspect]
     Indication: ACUTE MYELOID LEUKAEMIA
     Dosage: 66 mg, qd
     Route: 042
     Dates: start: 20121018
  2. CYTARABINE [Suspect]
     Indication: ACUTE MYELOID LEUKAEMIA
     Dosage: 2200 mg, qd
     Route: 042
     Dates: start: 20121018
  3. MERONEM [Concomitant]
     Indication: ANTIBIOTIC THERAPY
     Dosage: 1 g, tid
     Route: 042
     Dates: start: 20121026
  4. TARGOCID [Concomitant]
     Indication: ANTIBIOTIC THERAPY
     Dosage: 200 mg, qd
     Route: 042
     Dates: start: 20121026
  5. ZOVIRAX [Concomitant]
     Indication: ANTIVIRAL TREATMENT
     Dosage: 200 mg, tid
     Route: 048
     Dates: start: 20121023

REACTIONS (2)
  - Bone marrow failure [Unknown]
  - Cerebral haemorrhage [Fatal]
